FAERS Safety Report 4870077-8 (Version None)
Quarter: 2005Q4

REPORT INFORMATION
  Report Type: 
  Country: None (occurrence: None)
  Receive Date: 20051223
  Receipt Date: 20050826
  Transmission Date: 20060501
  Serious: Yes (Other)
  Sender: FDA-Public Use
  Company Number: 2005BI013419

PATIENT
  Sex: Female

DRUGS (2)
  1. AVONEX [Suspect]
     Indication: MULTIPLE SCLEROSIS
     Dosage: 30 UG; QW; IM
     Route: 030
     Dates: start: 20041101
  2. PROVIGIL [Concomitant]

REACTIONS (4)
  - BIOPSY BONE MARROW ABNORMAL [None]
  - GASTROINTESTINAL OEDEMA [None]
  - HEPATOMEGALY [None]
  - SPLENOMEGALY [None]
